FAERS Safety Report 9690280 (Version 1)
Quarter: 2013Q4

REPORT INFORMATION
  Report Type: Report from Study
  Country: US (occurrence: US)
  Receive Date: 20131115
  Receipt Date: 20131115
  Transmission Date: 20140711
  Serious: Yes (Other)
  Sender: FDA-Public Use
  Company Number: US-ROCHE-1301755

PATIENT
  Age: 28 Year
  Sex: Male
  Weight: 64.74 kg

DRUGS (5)
  1. NUTROPIN AQ [Suspect]
     Indication: GROWTH HORMONE DEFICIENCY
     Route: 058
     Dates: end: 20130507
  2. NUTROPIN AQ [Suspect]
     Dosage: SECOND THERAPY WAS STARTED ON 07/MAY/2013
     Route: 058
  3. FOSAMAX [Concomitant]
     Route: 048
  4. ALL DAY ALLERGY [Concomitant]
     Route: 048
  5. CALCIUM CARBONATE [Concomitant]
     Route: 048
     Dates: start: 201211

REACTIONS (4)
  - Insulin-like growth factor decreased [Unknown]
  - Vitamin D decreased [Unknown]
  - Osteoporosis [Unknown]
  - Fatigue [Unknown]
